FAERS Safety Report 5897506-5 (Version None)
Quarter: 2008Q3

REPORT INFORMATION
  Report Type: 
  Country: None (occurrence: None)
  Receive Date: 20080925
  Receipt Date: 20080919
  Transmission Date: 20090109
  Serious: Yes (Other)
  Sender: FDA-Public Use
  Company Number: JP-ALLERGAN-0811848US

PATIENT
  Sex: Male
  Weight: 55 kg

DRUGS (2)
  1. ALESION TABLET [Suspect]
     Indication: PRURITUS
     Dosage: 20 MG, QD
     Route: 048
     Dates: start: 20080825, end: 20080826
  2. ANTEBATE [Concomitant]
     Indication: PRURITUS
     Dosage: 10 G, UNK
     Route: 062
     Dates: start: 20080825

REACTIONS (1)
  - HALLUCINATION, AUDITORY [None]
